FAERS Safety Report 6899064-5 (Version None)
Quarter: 2010Q3

REPORT INFORMATION
  Report Type: 
  Country: None (occurrence: None)
  Receive Date: 20100802
  Receipt Date: 20080220
  Transmission Date: 20110219
  Serious: No
  Sender: FDA-Public Use
  Company Number: US-PFIZER INC-2008001612

PATIENT
  Sex: Female
  Weight: 81.818 kg

DRUGS (2)
  1. LYRICA [Suspect]
     Indication: COMPLEX REGIONAL PAIN SYNDROME
     Dates: start: 20070101
  2. ALL OTHER THERAPEUTIC PRODUCTS [Concomitant]
     Indication: CONVULSION

REACTIONS (1)
  - URINE ANALYSIS ABNORMAL [None]
